FAERS Safety Report 5320729-0 (Version None)
Quarter: 2007Q2

REPORT INFORMATION
  Report Type: 
  Country: None (occurrence: None)
  Receive Date: 20070509
  Receipt Date: 20070502
  Transmission Date: 20071010
  Serious: Yes (Other)
  Sender: FDA-Public Use
  Company Number: FI-GENENTECH-240871

PATIENT
  Sex: Male
  Weight: 65 kg

DRUGS (5)
  1. RITUXIMAB [Suspect]
     Indication: B-CELL LYMPHOMA
     Dosage: 650 MG, UNK
     Route: 042
  2. CYCLOPHOSPHAMIDE [Suspect]
     Indication: B-CELL LYMPHOMA
     Dosage: 1290 MG, UNK
     Route: 042
  3. DOXORUBICIN HCL [Suspect]
     Indication: B-CELL LYMPHOMA
     Dosage: 85 MG, UNK
     Route: 042
  4. PREDNISONE TAB [Suspect]
     Indication: B-CELL LYMPHOMA
     Dosage: 100 MG, UNK
     Route: 048
  5. VINCRISTINE [Concomitant]
     Indication: B-CELL LYMPHOMA

REACTIONS (1)
  - DEEP VEIN THROMBOSIS [None]
